FAERS Safety Report 10723495 (Version 1)
Quarter: 2015Q1

REPORT INFORMATION
  Report Type: Spontaneous
  Country: US (occurrence: None)
  Receive Date: 20150114
  Receipt Date: 20150114
  Transmission Date: 20150721
  Serious: Yes (Death, Hospitalization, Other)
  Sender: FDA-Public Use
  Company Number: FK201500036

PATIENT
  Age: 26 Year
  Sex: Male

DRUGS (4)
  1. AMLODIPINE [Suspect]
     Active Substance: AMLODIPINE BESYLATE
     Indication: HYPERTENSION
     Dosage: UNKNOWN, UNKNOWN, UNKNOWN UNKNOWN THERAPY DATES
  2. INTRALIPID [Suspect]
     Active Substance: EGG PHOSPHOLIPIDS\GLYCERIN\SOYBEAN OIL
     Indication: TOXICITY TO VARIOUS AGENTS
     Dosage: 1.5 MG/KG, 120 ML BOLUS, UNKNOWN
  3. METOPROLOL [Suspect]
     Active Substance: METOPROLOL
     Indication: HYPERTENSION
     Dosage: UNKNOWN, UNKNOWN, UNKNOWN WITH UNKNOWN THERAPY DATES
  4. LISINOPRIL. [Suspect]
     Active Substance: LISINOPRIL
     Indication: HYPERTENSION
     Dosage: UNKNOWN, UNKNOWN,  UNKNOWN WITH UNKNOWN THERAPY DATES

REACTIONS (7)
  - Bradycardia [None]
  - Hypotension [None]
  - Hyperlipidaemia [None]
  - Acute respiratory failure [None]
  - Acute kidney injury [None]
  - Off label use [None]
  - Intentional overdose [None]
